FAERS Safety Report 24371048 (Version 1)
Quarter: 2024Q3

REPORT INFORMATION
  Report Type: Report from Study
  Country: AE (occurrence: AE)
  Receive Date: 20240927
  Receipt Date: 20240927
  Transmission Date: 20241017
  Serious: Yes (Life-Threatening)
  Sender: AMGEN
  Company Number: AE-SERVIER-S24011894

PATIENT
  Age: 62 Year
  Sex: Male

DRUGS (1)
  1. IVABRADINE [Suspect]
     Active Substance: IVABRADINE
     Indication: Cardiac failure
     Dosage: 10 MILLIGRAM, QD
     Route: 065

REACTIONS (3)
  - Myocardial infarction [Recovering/Resolving]
  - Renal injury [Recovering/Resolving]
  - Blood creatinine increased [Recovering/Resolving]
